FAERS Safety Report 6178063-5 (Version None)
Quarter: 2009Q2

REPORT INFORMATION
  Report Type: 
  Country: None (occurrence: None)
  Receive Date: 20090504
  Receipt Date: 20090129
  Transmission Date: 20091009
  Serious: No
  Sender: FDA-Public Use
  Company Number: US-ALEXION-A200900081

PATIENT
  Sex: Male

DRUGS (8)
  1. SOLIRIS [Suspect]
     Indication: PAROXYSMAL NOCTURNAL HAEMOGLOBINURIA
     Dosage: 900 MG, Q2WKS
     Route: 042
     Dates: start: 20071001
  2. TOPAMAX [Concomitant]
     Indication: MIGRAINE
     Dosage: 100 MG, BID
     Route: 048
     Dates: start: 20040101
  3. DURADRIN [Concomitant]
     Indication: MIGRAINE
     Dosage: UNK
  4. IMITREX                            /01044801/ [Concomitant]
     Indication: MIGRAINE
     Dosage: UNK
  5. WARFARIN [Concomitant]
     Dosage: 9 MG, QD
     Route: 048
  6. FOLIC ACID [Concomitant]
     Dosage: 8 TABLETS, QD
  7. IRON [Concomitant]
     Dosage: 28 MG, BID
     Route: 048
  8. MULTIVITAMIN                       /00831701/ [Concomitant]
     Dosage: UNK

REACTIONS (2)
  - HEADACHE [None]
  - RHINORRHOEA [None]
